FAERS Safety Report 16325966 (Version 5)
Quarter: 2019Q2

REPORT INFORMATION
  Report Type: Report from Study
  Country: KR (occurrence: KR)
  Receive Date: 20190517
  Receipt Date: 20190618
  Transmission Date: 20190711
  Serious: Yes (Hospitalization)
  Sender: FDA-Public Use
  Company Number: KR-EISAI MEDICAL RESEARCH-EC-2019-056455

PATIENT
  Age: 68 Year
  Sex: Female
  Weight: 46.1 kg

DRUGS (17)
  1. MOSAPRIDE CITRATE [Concomitant]
     Active Substance: MOSAPRIDE CITRATE
     Dates: start: 201804
  2. TRAMADOL HYDROCHLORIDE. [Concomitant]
     Active Substance: TRAMADOL HYDROCHLORIDE
     Dates: start: 20190426, end: 20190427
  3. ATORVASTATIN CALCIUM. [Concomitant]
     Active Substance: ATORVASTATIN CALCIUM
     Dates: start: 201804
  4. LENVATINIB [Suspect]
     Active Substance: LENVATINIB
     Dosage: DOSE REDUCED
     Route: 048
     Dates: start: 20190508
  5. PEMBROLIZUMAB. [Suspect]
     Active Substance: PEMBROLIZUMAB
     Route: 041
     Dates: start: 20190515
  6. REBAMIPIDE [Concomitant]
     Active Substance: REBAMIPIDE
     Dates: start: 201804
  7. TACOPEN [Concomitant]
     Dates: start: 20190424, end: 20190507
  8. CHOLINE ALFOSCERATE [Concomitant]
     Active Substance: CHOLINE ALFOSCERATE
     Dates: start: 201804
  9. RUKASYN [Concomitant]
     Dates: start: 20190424, end: 20190429
  10. ALMAGATE [Concomitant]
     Active Substance: ALMAGATE
     Dates: start: 201804
  11. LENVATINIB [Suspect]
     Active Substance: LENVATINIB
     Indication: MALIGNANT MELANOMA
     Route: 048
     Dates: start: 20190424, end: 20190507
  12. SULTAMICILLIN TOSYLATE [Concomitant]
     Active Substance: SULTAMICILLIN TOSYLATE
     Dates: start: 20190429, end: 20190508
  13. TERRAMYCIN OPHTHALMIC OINTMENT [Concomitant]
     Dates: start: 20190425
  14. PANTOPRAZOLE SODIUM. [Concomitant]
     Active Substance: PANTOPRAZOLE SODIUM
     Dates: start: 20190429, end: 20190508
  15. PEMBROLIZUMAB. [Suspect]
     Active Substance: PEMBROLIZUMAB
     Indication: MALIGNANT MELANOMA
     Route: 041
     Dates: start: 20190424, end: 20190424
  16. ESOMEPRAZOLE MAGNESIUM. [Concomitant]
     Active Substance: ESOMEPRAZOLE MAGNESIUM
     Dates: start: 201804
  17. TRASPHEN SEMI [Concomitant]
     Dates: start: 20180404, end: 20190423

REACTIONS (1)
  - Drug eruption [Recovered/Resolved]

NARRATIVE: CASE EVENT DATE: 20190503
